FAERS Safety Report 10185091 (Version 1)
Quarter: 2014Q2

REPORT INFORMATION
  Report Type: Spontaneous
  Country: US (occurrence: None)
  Receive Date: 20140520
  Receipt Date: 20140520
  Transmission Date: 20141212
  Serious: No
  Sender: FDA-Public Use
  Company Number: None

PATIENT
  Age: 44 Year
  Sex: Male
  Weight: 102.97 kg

DRUGS (1)
  1. LOSARTAN-HCTZ [Suspect]
     Route: 048
     Dates: start: 20140417, end: 20140426

REACTIONS (5)
  - Influenza like illness [None]
  - Pyrexia [None]
  - Pain [None]
  - Chills [None]
  - Thirst [None]
